FAERS Safety Report 23134021 (Version 1)
Quarter: 2023Q4

REPORT INFORMATION
  Report Type: Spontaneous
  Country: US (occurrence: None)
  Receive Date: 20231101
  Receipt Date: 20231101
  Transmission Date: 20240110
  Serious: No
  Sender: FDA-Public Use
  Company Number: US-USAntibiotics-000204

PATIENT

DRUGS (2)
  1. AUGMENTIN [Suspect]
     Active Substance: AMOXICILLIN\CLAVULANATE POTASSIUM
     Indication: Product used for unknown indication
  2. LITFULO [Concomitant]
     Active Substance: RITLECITINIB TOSYLATE
     Indication: Product used for unknown indication
     Dosage: 50 MG

REACTIONS (1)
  - Drug hypersensitivity [Unknown]
